FAERS Safety Report 13079698 (Version 1)
Quarter: 2017Q1

REPORT INFORMATION
  Report Type: Spontaneous
  Country: US (occurrence: US)
  Receive Date: 20170103
  Receipt Date: 20170103
  Transmission Date: 20170428
  Serious: No
  Sender: FDA-Public Use
  Company Number: US-BAYER-2016-244201

PATIENT
  Age: 45 Year
  Sex: Male
  Weight: 100 kg

DRUGS (1)
  1. MIRALAX [Suspect]
     Active Substance: POLYETHYLENE GLYCOL 3350
     Dosage: UNK
     Route: 048
     Dates: start: 20161221, end: 20161221

REACTIONS (3)
  - Dysgeusia [Recovered/Resolved]
  - Wrong technique in product usage process [Unknown]
  - Product odour abnormal [None]

NARRATIVE: CASE EVENT DATE: 20161221
